FAERS Safety Report 4875049-5 (Version None)
Quarter: 2006Q1

REPORT INFORMATION
  Report Type: 
  Country: None (occurrence: None)
  Receive Date: 20060104
  Receipt Date: 20051221
  Transmission Date: 20060701
  Serious: Yes (Other)
  Sender: FDA-Public Use
  Company Number: 2005172581

PATIENT
  Age: 32 Year
  Sex: Male

DRUGS (4)
  1. SULFASALAZINE [Suspect]
     Indication: COLITIS ULCERATIVE
     Dosage: 4.5 GRAM, ORAL
     Route: 048
     Dates: start: 20050923, end: 20051122
  2. PREDNISOLONE [Concomitant]
  3. NIZATIDINE [Concomitant]
  4. LAC B                     (LACTOBACILLUS BIFIDUS, LYOPHILIZED) [Concomitant]

REACTIONS (6)
  - ALANINE AMINOTRANSFERASE INCREASED [None]
  - ASPARTATE AMINOTRANSFERASE INCREASED [None]
  - BLOOD BILIRUBIN INCREASED [None]
  - DRUG ERUPTION [None]
  - HEPATIC FUNCTION ABNORMAL [None]
  - PYREXIA [None]
